FAERS Safety Report 5417996-1 (Version None)
Quarter: 2007Q3

REPORT INFORMATION
  Report Type: 
  Country: None (occurrence: None)
  Receive Date: 20070817
  Receipt Date: 20070702
  Transmission Date: 20080115
  Serious: No
  Sender: FDA-Public Use
  Company Number: A0658240A

PATIENT
  Age: 52 Year
  Sex: Female
  Weight: 62.7 kg

DRUGS (5)
  1. VERAMYST [Suspect]
     Route: 045
     Dates: start: 20070615
  2. PREMARIN [Concomitant]
     Route: 048
  3. SIMVASTATIN [Concomitant]
     Route: 048
  4. MULTIVITAMIN [Concomitant]
     Route: 048
  5. CLARINEX [Concomitant]
     Route: 048

REACTIONS (2)
  - CONJUNCTIVAL HAEMORRHAGE [None]
  - OCULAR HYPERAEMIA [None]
